FAERS Safety Report 6260544-7 (Version None)
Quarter: 2009Q3

REPORT INFORMATION
  Report Type: 
  Country: None (occurrence: None)
  Receive Date: 20090708
  Receipt Date: 20090702
  Transmission Date: 20100115
  Serious: Yes (Death, Hospitalization, Other)
  Sender: FDA-Public Use
  Company Number: US-CELGENEUS-163-21880-09040122

PATIENT
  Sex: Male

DRUGS (1)
  1. REVLIMID [Suspect]
     Route: 048
     Dates: start: 20090206

REACTIONS (7)
  - INFECTION [None]
  - INFLAMMATION [None]
  - MULTI-ORGAN FAILURE [None]
  - PYREXIA [None]
  - RESPIRATORY FAILURE [None]
  - THROMBOSIS [None]
  - VIRAL INFECTION [None]
